FAERS Safety Report 6563375-3 (Version None)
Quarter: 2010Q1

REPORT INFORMATION
  Report Type: 
  Country: None (occurrence: None)
  Receive Date: 20100130
  Receipt Date: 20091216
  Transmission Date: 20100710
  Serious: No
  Sender: FDA-Public Use
  Company Number: US-ABBOTT-09P-163-0615584-00

PATIENT
  Sex: Female
  Weight: 79.45 kg

DRUGS (6)
  1. HUMIRA [Suspect]
     Indication: PSORIATIC ARTHROPATHY
     Dates: start: 20070101, end: 20091017
  2. HUMIRA [Suspect]
     Indication: PSORIASIS
     Dosage: RE-STARTED
     Dates: start: 20091028
  3. LEVOTHYROXINE SODIUM [Concomitant]
     Indication: HYPOTHYROIDISM
  4. BISOPROLOL FUMARATE [Concomitant]
     Indication: HYPERTENSION
  5. ZOCOR [Concomitant]
     Indication: BLOOD CHOLESTEROL INCREASED
  6. PREMARIN [Concomitant]
     Indication: MENOPAUSE

REACTIONS (1)
  - NASOPHARYNGITIS [None]
